FAERS Safety Report 4712081-6 (Version None)
Quarter: 2005Q3

REPORT INFORMATION
  Report Type: 
  Country: None (occurrence: None)
  Receive Date: 20050712
  Receipt Date: 20050412
  Transmission Date: 20060218
  Serious: Yes (Hospitalization, Disabling, Other)
  Sender: FDA-Public Use
  Company Number: US-MERCK-0504USA01839

PATIENT
  Age: 52 Year
  Sex: Male
  Weight: 114 kg

DRUGS (7)
  1. VIOXX [Suspect]
     Indication: BACK PAIN
     Route: 048
     Dates: start: 20000214, end: 20020201
  2. VIOXX [Suspect]
     Indication: CARPAL TUNNEL SYNDROME
     Route: 048
     Dates: start: 20000214, end: 20020201
  3. HUMALOG [Concomitant]
     Indication: DIABETES MELLITUS
     Route: 065
  4. ASPIRIN [Concomitant]
     Route: 065
     Dates: start: 19990201
  5. INSULIN [Concomitant]
     Indication: DIABETES MELLITUS
     Route: 065
     Dates: start: 19710601
  6. ZESTRIL [Suspect]
     Route: 065
  7. PRILOSEC [Concomitant]
     Route: 065

REACTIONS (50)
  - AMPUTATION [None]
  - ANXIETY [None]
  - ASTHENIA [None]
  - ASTHMA [None]
  - AUTONOMIC NEUROPATHY [None]
  - BASILAR ARTERY OCCLUSION [None]
  - BLOOD GLUCOSE INCREASED [None]
  - CARDIAC DISORDER [None]
  - CARDIAC FAILURE [None]
  - CARDIAC FAILURE CONGESTIVE [None]
  - CARDIOMEGALY [None]
  - CAROTID ARTERY OCCLUSION [None]
  - CAROTID ARTERY STENOSIS [None]
  - CEREBRAL INFARCTION [None]
  - CEREBROVASCULAR ACCIDENT [None]
  - CHEST PAIN [None]
  - CORONARY ARTERY DISEASE [None]
  - CORONARY ARTERY OCCLUSION [None]
  - DEVICE RELATED INFECTION [None]
  - DRUG HYPERSENSITIVITY [None]
  - EAR INFECTION [None]
  - EMOTIONAL DISORDER [None]
  - EMOTIONAL DISTRESS [None]
  - FALL [None]
  - FOOT FRACTURE [None]
  - FRACTURE NONUNION [None]
  - GASTROOESOPHAGEAL REFLUX DISEASE [None]
  - HEMIANOPIA HOMONYMOUS [None]
  - HYPERLIPIDAEMIA [None]
  - HYPERTENSION [None]
  - IMPAIRED HEALING [None]
  - INFECTION [None]
  - LACERATION [None]
  - LOCALISED INFECTION [None]
  - LOSS OF CONSCIOUSNESS [None]
  - MULTI-ORGAN DISORDER [None]
  - MYOPATHY [None]
  - ORTHOSTATIC HYPOTENSION [None]
  - OSTEOMYELITIS [None]
  - PAIN [None]
  - PAIN IN EXTREMITY [None]
  - SINUS TACHYCARDIA [None]
  - SKIN LACERATION [None]
  - SPONDYLOLISTHESIS [None]
  - STOMACH DISCOMFORT [None]
  - SYNCOPE [None]
  - TENOSYNOVITIS [None]
  - TRANSIENT ISCHAEMIC ATTACK [None]
  - ULCER [None]
  - VASCULAR CALCIFICATION [None]
